FAERS Safety Report 4402219-2 (Version None)
Quarter: 2004Q3

REPORT INFORMATION
  Report Type: 
  Country: None (occurrence: None)
  Receive Date: 20040720
  Receipt Date: 20040506
  Transmission Date: 20050211
  Serious: Yes (Hospitalization)
  Sender: FDA-Public Use
  Company Number: US-ROCHE-367158

PATIENT
  Age: 44 Year
  Sex: Male
  Weight: 95.3 kg

DRUGS (5)
  1. PEGASYS [Suspect]
     Indication: HEPATITIS C VIRUS
     Route: 058
     Dates: start: 20040304, end: 20040531
  2. COPEGUS [Suspect]
     Indication: HEPATITIS C VIRUS
     Route: 048
     Dates: start: 20040304, end: 20040531
  3. ELAVIL [Concomitant]
     Indication: BACK PAIN
     Route: 048
  4. PERCOCET [Concomitant]
     Indication: BACK PAIN
     Route: 048
  5. NEURONTIN [Concomitant]
     Route: 048

REACTIONS (15)
  - ABNORMAL BEHAVIOUR [None]
  - AMNESIA [None]
  - CONFUSIONAL STATE [None]
  - DEPRESSION [None]
  - DIZZINESS [None]
  - EMOTIONAL DISTRESS [None]
  - HYPOAESTHESIA [None]
  - INSOMNIA [None]
  - IRRITABILITY [None]
  - MIDDLE INSOMNIA [None]
  - MUSCULAR WEAKNESS [None]
  - PERONEAL NERVE PALSY [None]
  - TINNITUS [None]
  - TREMOR [None]
  - WEIGHT DECREASED [None]
